FAERS Safety Report 20748245 (Version 3)
Quarter: 2023Q2

REPORT INFORMATION
  Report Type: Other
  Country: US (occurrence: None)
  Receive Date: 20220426
  Receipt Date: 20230627
  Transmission Date: 20230722
  Serious: No
  Sender: FDA-Public Use
  Company Number: US-ROCHE-3081884

PATIENT
  Age: 65 Year
  Sex: Female

DRUGS (11)
  1. OCREVUS [Suspect]
     Active Substance: OCRELIZUMAB
     Indication: Relapsing multiple sclerosis
     Dosage: INITIALLY 300 MG DAY 1 AND DAY 15
     Route: 042
     Dates: start: 20200528
  2. OCREVUS [Suspect]
     Active Substance: OCRELIZUMAB
     Route: 065
     Dates: start: 20180423
  3. TECFIDERA [Concomitant]
     Active Substance: DIMETHYL FUMARATE
  4. AMPHETAMINE [Concomitant]
     Active Substance: AMPHETAMINE
  5. ASPIRIN [Concomitant]
     Active Substance: ASPIRIN
  6. BACLOFEN [Concomitant]
     Active Substance: BACLOFEN
  7. CYTOMEL [Concomitant]
     Active Substance: LIOTHYRONINE SODIUM
  8. LEVETIRACETAM [Concomitant]
     Active Substance: LEVETIRACETAM
  9. LEXAPROFEN [Concomitant]
  10. LYRICA [Concomitant]
     Active Substance: PREGABALIN
  11. CLONAZEPAM [Concomitant]
     Active Substance: CLONAZEPAM

REACTIONS (5)
  - COVID-19 [Recovered/Resolved]
  - Influenza [Unknown]
  - Fatigue [Unknown]
  - Lung disorder [Not Recovered/Not Resolved]
  - Pneumonia [Not Recovered/Not Resolved]

NARRATIVE: CASE EVENT DATE: 20230201
